FAERS Safety Report 5833051-0 (Version None)
Quarter: 2008Q3

REPORT INFORMATION
  Report Type: 
  Country: None (occurrence: None)
  Receive Date: 20080805
  Receipt Date: 20080725
  Transmission Date: 20090109
  Serious: Yes (Other)
  Sender: FDA-Public Use
  Company Number: GB-ASTRAZENECA-2008GB01431

PATIENT
  Age: 59 Year
  Sex: Female

DRUGS (2)
  1. CRESTOR [Suspect]
     Indication: BLOOD CHOLESTEROL
     Route: 048
     Dates: start: 20071201
  2. CRESTOR [Suspect]
     Dosage: STARTED AFTER BLEED
     Route: 048

REACTIONS (2)
  - ANEURYSM [None]
  - RENAL ANEURYSM [None]
